FAERS Safety Report 19794901 (Version 2)
Quarter: 2021Q3

REPORT INFORMATION
  Report Type: Report from Study
  Country: EG (occurrence: EG)
  Receive Date: 20210907
  Receipt Date: 20210914
  Transmission Date: 20211014
  Serious: Yes (Life-Threatening, Other)
  Sender: FDA-Public Use
  Company Number: NVSC2021EG196825

PATIENT
  Age: 45 Year
  Sex: Female

DRUGS (6)
  1. COSENTYX [Suspect]
     Active Substance: SECUKINUMAB
     Indication: ANKYLOSING SPONDYLITIS
     Dosage: 150 MG, QMO (FOR THREE MONTHS AS MAINTAINANCE DOSE)
     Route: 058
     Dates: start: 20210731
  2. TAVACIN [Concomitant]
     Indication: PRODUCT USED FOR UNKNOWN INDICATION
     Dosage: UNK
     Route: 065
  3. PANADOL ADVANCE [Concomitant]
     Active Substance: ACETAMINOPHEN
     Indication: PRODUCT USED FOR UNKNOWN INDICATION
     Dosage: UNK
     Route: 065
  4. EPICOPHYLLINE [Concomitant]
     Indication: PRODUCT USED FOR UNKNOWN INDICATION
     Dosage: UNK
     Route: 065
  5. COSENTYX [Suspect]
     Active Substance: SECUKINUMAB
     Dosage: 150 MG, QMO (FOR THREE MONTHS AS MAINTAINANCE DOSE)
     Route: 058
     Dates: start: 20210803
  6. SARCOZIDE [Concomitant]
     Indication: PRODUCT USED FOR UNKNOWN INDICATION
     Dosage: UNK
     Route: 065

REACTIONS (24)
  - Productive cough [Not Recovered/Not Resolved]
  - Musculoskeletal stiffness [Not Recovered/Not Resolved]
  - Incorrect dose administered [Recovering/Resolving]
  - Hypersensitivity [Recovering/Resolving]
  - Dizziness [Recovering/Resolving]
  - Chills [Not Recovered/Not Resolved]
  - Ankylosing spondylitis [Not Recovered/Not Resolved]
  - Near death experience [Recovering/Resolving]
  - Dyspnoea [Recovering/Resolving]
  - Decreased appetite [Not Recovered/Not Resolved]
  - Movement disorder [Recovering/Resolving]
  - Neck pain [Not Recovered/Not Resolved]
  - Syncope [Recovering/Resolving]
  - Muscle tightness [Not Recovered/Not Resolved]
  - Aptyalism [Not Recovered/Not Resolved]
  - Mental disorder [Recovering/Resolving]
  - Arthralgia [Not Recovered/Not Resolved]
  - Nausea [Recovering/Resolving]
  - Fatigue [Recovering/Resolving]
  - Balance disorder [Recovering/Resolving]
  - Nervous system disorder [Recovering/Resolving]
  - Back pain [Not Recovered/Not Resolved]
  - Dry mouth [Not Recovered/Not Resolved]
  - Fall [Recovering/Resolving]

NARRATIVE: CASE EVENT DATE: 20210731
